FAERS Safety Report 6186999-4 (Version None)
Quarter: 2009Q2

REPORT INFORMATION
  Report Type: 
  Country: None (occurrence: None)
  Receive Date: 20090512
  Receipt Date: 20090428
  Transmission Date: 20091009
  Serious: Yes (Other)
  Sender: FDA-Public Use
  Company Number: JP-BAYER-200911359BYL

PATIENT
  Age: 40 Year
  Sex: Female
  Weight: 46 kg

DRUGS (6)
  1. FLUDARA [Suspect]
     Indication: MYELODYSPLASTIC SYNDROME
     Dosage: AS USED: 30 MG/M2  UNIT DOSE: 50 MG
     Route: 042
     Dates: start: 20080801, end: 20080806
  2. BUSULFEX [Concomitant]
     Indication: MYELODYSPLASTIC SYNDROME
     Dosage: AS USED: 3.2 MG/KG
     Route: 042
     Dates: start: 20080802, end: 20080806
  3. DEPAKENE [Concomitant]
     Indication: CONVULSION PROPHYLAXIS
     Dosage: TOTAL DAILY DOSE: 800 G  UNIT DOSE: 200 MG
     Route: 048
     Dates: start: 20080729, end: 20080803
  4. CONCENTRATED RED CELLS [Concomitant]
     Indication: PACKED RED BLOOD CELL TRANSFUSION
     Route: 042
     Dates: start: 20080809, end: 20080828
  5. PLATELETS [Concomitant]
     Indication: PLATELET TRANSFUSION
     Route: 042
     Dates: start: 20080809, end: 20080904
  6. FRESH FROZEN PLASMA [Concomitant]
     Indication: BLOOD PRODUCT TRANSFUSION
     Route: 042
     Dates: start: 20081002, end: 20081004

REACTIONS (3)
  - ACUTE GRAFT VERSUS HOST DISEASE [None]
  - CYTOMEGALOVIRUS VIRAEMIA [None]
  - SEPSIS [None]
